FAERS Safety Report 5602977-5 (Version None)
Quarter: 2008Q1

REPORT INFORMATION
  Report Type: 
  Country: None (occurrence: None)
  Receive Date: 20080125
  Receipt Date: 20080115
  Transmission Date: 20080703
  Serious: Yes (Hospitalization, Other)
  Sender: FDA-Public Use
  Company Number: PH-PFIZER INC-2007104737

PATIENT
  Age: 54 Year
  Sex: Female

DRUGS (3)
  1. DILANTIN [Suspect]
     Indication: CONVULSION
     Route: 042
  2. DILANTIN [Suspect]
     Route: 048
  3. PHENOBARBITAL TAB [Concomitant]

REACTIONS (3)
  - ERYTHEMA MULTIFORME [None]
  - OEDEMA PERIPHERAL [None]
  - PYREXIA [None]
